FAERS Safety Report 4765547-7 (Version None)
Quarter: 2005Q3

REPORT INFORMATION
  Report Type: 
  Country: None (occurrence: None)
  Receive Date: 20050906
  Receipt Date: 20050830
  Transmission Date: 20060218
  Serious: Yes (Death)
  Sender: FDA-Public Use
  Company Number: D-A2501023-3836

PATIENT
  Age: 75 Year
  Sex: Male
  Weight: 74.6 kg

DRUGS (2)
  1. DONEPEZIL HCL [Suspect]
     Indication: DEMENTIA ALZHEIMER'S TYPE
     Dosage: SEE IMAGE, ORAL
     Route: 048
     Dates: end: 20040210
  2. DONEPEZIL HCL [Suspect]
     Indication: DEMENTIA ALZHEIMER'S TYPE
     Dosage: SEE IMAGE, ORAL
     Route: 048
     Dates: start: 20030321

REACTIONS (1)
  - PULMONARY EMBOLISM [None]
